FAERS Safety Report 25421166 (Version 1)
Quarter: 2025Q2

REPORT INFORMATION
  Report Type: Spontaneous
  Country: US (occurrence: US)
  Receive Date: 20250611
  Receipt Date: 20250611
  Transmission Date: 20250716
  Serious: No
  Sender: BRAEBURN PHARMACEUTICALS
  Company Number: US-BRAEBURN PHARMACEUTICALS-US-BRA-25-000443

PATIENT

DRUGS (2)
  1. BRIXADI [Suspect]
     Active Substance: BUPRENORPHINE
     Indication: Drug use disorder
     Dosage: 96 MILLIGRAM, MONTHLY (ON LOWER RIGHT ABDOMEN)
     Route: 058
     Dates: start: 20250514, end: 20250514
  2. LISINOPRIL [Concomitant]
     Active Substance: LISINOPRIL
     Indication: Product used for unknown indication
     Route: 065

REACTIONS (1)
  - Drug withdrawal syndrome [Recovering/Resolving]

NARRATIVE: CASE EVENT DATE: 20250515
